FAERS Safety Report 7853124 (Version 2)
Quarter: 2019Q1

REPORT INFORMATION
  Report Type: Spontaneous
  Country: GB (occurrence: GB)
  Receive Date: 20110311
  Receipt Date: 20190220
  Transmission Date: 20190418
  Serious: Yes (Life-Threatening)
  Sender: FDA-Public Use
  Company Number: GB-PFIZER INC-2011052635

PATIENT
  Age: 29 Year
  Sex: Male
  Weight: 71 kg

DRUGS (2)
  1. CHAMPIX [Suspect]
     Active Substance: VARENICLINE TARTRATE
     Indication: SMOKING CESSATION THERAPY
     Dosage: 1000 UG, 2X/DAY
     Route: 048
     Dates: start: 20110202, end: 20110227
  2. CHAMPIX [Suspect]
     Active Substance: VARENICLINE TARTRATE
     Dosage: 500 UG, 2X/DAY
     Route: 048
     Dates: start: 20110227, end: 20110302

REACTIONS (3)
  - Intentional self-injury [Unknown]
  - Thinking abnormal [Recovered/Resolved]
  - Irritability [Unknown]

NARRATIVE: CASE EVENT DATE: 201102
